FAERS Safety Report 25699352 (Version 2)
Quarter: 2025Q3

REPORT INFORMATION
  Report Type: Spontaneous
  Country: BR (occurrence: BR)
  Receive Date: 20250819
  Receipt Date: 20250911
  Transmission Date: 20251020
  Serious: Yes (Other)
  Sender: TEVA
  Company Number: BR-TEVA-VS-3363071

PATIENT
  Age: 74 Year
  Sex: Female

DRUGS (4)
  1. OXALIPLATIN [Suspect]
     Active Substance: OXALIPLATIN
     Indication: Microsatellite instability cancer
     Route: 065
     Dates: start: 202208
  2. IRINOTECAN [Suspect]
     Active Substance: IRINOTECAN
     Indication: Microsatellite instability cancer
     Route: 065
     Dates: start: 202208
  3. FLUOROURACIL [Suspect]
     Active Substance: FLUOROURACIL
     Indication: Microsatellite instability cancer
     Dosage: RECEIVED 46 HOUR CONTINUOUS INFUSION
     Route: 065
     Dates: start: 202208
  4. LEUCOVORIN [Suspect]
     Active Substance: LEUCOVORIN\LEUCOVORIN CALCIUM
     Indication: Microsatellite instability cancer
     Route: 065
     Dates: start: 202208

REACTIONS (4)
  - Neuropathy peripheral [Unknown]
  - Off label use [Unknown]
  - Haematotoxicity [Unknown]
  - Diarrhoea [Unknown]

NARRATIVE: CASE EVENT DATE: 20220101
